FAERS Safety Report 4641120-6 (Version None)
Quarter: 2005Q2

REPORT INFORMATION
  Report Type: 
  Country: None (occurrence: None)
  Receive Date: 20050418
  Receipt Date: 20050418
  Transmission Date: 20051028
  Serious: Yes (Hospitalization)
  Sender: FDA-Public Use
  Company Number: None

PATIENT
  Age: 33 Year
  Sex: Female
  Weight: 52.1637 kg

DRUGS (1)
  1. TUBERCULLIN PPD [Suspect]
     Indication: TUBERCULIN TEST
     Dosage: 5TU/0.1ML SC    STAT
     Route: 058

REACTIONS (1)
  - ANAPHYLACTIC REACTION [None]
